FAERS Safety Report 5954098-X (Version None)
Quarter: 2008Q4

REPORT INFORMATION
  Report Type: 
  Country: None (occurrence: None)
  Receive Date: 20081114
  Receipt Date: 20081106
  Transmission Date: 20090506
  Serious: Yes (Other)
  Sender: FDA-Public Use
  Company Number: US-PFIZER INC-2008088919

PATIENT
  Sex: Female
  Weight: 93.4 kg

DRUGS (7)
  1. VARENICLINE [Suspect]
     Indication: SMOKING CESSATION THERAPY
     Route: 048
     Dates: start: 20081016, end: 20081022
  2. METFORMIN HCL [Concomitant]
     Route: 048
     Dates: start: 20060101
  3. MIRAPEX [Concomitant]
     Route: 048
     Dates: start: 20070101
  4. ACETYLSALICYLIC ACID SRT [Concomitant]
     Route: 048
     Dates: start: 20040101
  5. VITAMIN B-12 [Concomitant]
     Route: 048
     Dates: start: 20040101
  6. ALBUTEROL [Concomitant]
     Route: 055
     Dates: start: 20060101
  7. TYLENOL [Concomitant]
     Route: 048
     Dates: start: 20060101

REACTIONS (1)
  - SYNCOPE [None]
